FAERS Safety Report 23049155 (Version 2)
Quarter: 2023Q4

REPORT INFORMATION
  Report Type: Spontaneous
  Country: US (occurrence: US)
  Receive Date: 20231010
  Receipt Date: 20231013
  Transmission Date: 20240110
  Serious: Yes (Other)
  Sender: FDA-Public Use
  Company Number: US-BAYER-2023A138270

PATIENT
  Age: 46 Year
  Sex: Female

DRUGS (1)
  1. MIRENA [Suspect]
     Active Substance: LEVONORGESTREL
     Indication: Contraception
     Dosage: 20?G/DAY
     Route: 015
     Dates: end: 20230926

REACTIONS (2)
  - Device breakage [None]
  - Complication of device removal [None]

NARRATIVE: CASE EVENT DATE: 20230926
